FAERS Safety Report 4880989-7 (Version None)
Quarter: 2005Q4

REPORT INFORMATION
  Report Type: 
  Country: None (occurrence: None)
  Receive Date: 20051223
  Receipt Date: 20051108
  Transmission Date: 20060501
  Serious: Yes (Hospitalization)
  Sender: FDA-Public Use
  Company Number: 05P-163-0316823-00

PATIENT
  Age: 47 Year
  Sex: Female

DRUGS (8)
  1. HUMIRA [Suspect]
     Indication: RHEUMATOID ARTHRITIS
     Dosage: 40 MG, 1 IN 2 WK, SUBCUTANEOUS
     Route: 058
     Dates: start: 20050801, end: 20050901
  2. VOLTAREN [Concomitant]
  3. MISOPROSTOL [Concomitant]
  4. ENALAPRIL MALEATE [Concomitant]
  5. METHOTREXATE [Concomitant]
  6. GLUCOPHAGE [Concomitant]
  7. GLIPIZIDE [Concomitant]
  8. CLOPIDOGREL BISULFATE [Concomitant]

REACTIONS (1)
  - STAPHYLOCOCCAL INFECTION [None]
